FAERS Safety Report 20864874 (Version 2)
Quarter: 2023Q1

REPORT INFORMATION
  Report Type: Report from Study
  Country: CA (occurrence: CA)
  Receive Date: 20220524
  Receipt Date: 20230203
  Transmission Date: 20230418
  Serious: Yes (Other)
  Sender: FDA-Public Use
  Company Number: CA-JNJFOC-20220534712

PATIENT
  Age: 4 Decade
  Sex: Female

DRUGS (1)
  1. REMICADE [Suspect]
     Active Substance: INFLIXIMAB
     Indication: Crohn^s disease
     Route: 042

REACTIONS (7)
  - Eye injury [Recovered/Resolved]
  - Skin haemorrhage [Recovered/Resolved]
  - Foreign body in skin or subcutaneous tissue [Recovered/Resolved]
  - Concussion [Recovered/Resolved]
  - Facial bones fracture [Recovered/Resolved]
  - Eye contusion [Recovered/Resolved]
  - COVID-19 [Recovered/Resolved]

NARRATIVE: CASE EVENT DATE: 20220401
